FAERS Safety Report 10179782 (Version 3)
Quarter: 2014Q2

REPORT INFORMATION
  Report Type: Spontaneous
  Country: US (occurrence: None)
  Receive Date: 20140515
  Receipt Date: 20140616
  Transmission Date: 20141212
  Serious: Yes (Hospitalization)
  Sender: FDA-Public Use
  Company Number: UTC-048419

PATIENT
  Age: 74 Year
  Sex: Male
  Weight: 74.4 kg

DRUGS (1)
  1. REMODULIN [Suspect]
     Indication: HYPERTENSION
     Dosage: 0.032 UG/KG, CONTINUING, SUBCUTANEOUS
     Route: 058
     Dates: start: 20131031

REACTIONS (3)
  - Fluid retention [None]
  - Right ventricular failure [None]
  - Peripheral swelling [None]
